FAERS Safety Report 11078274 (Version 1)
Quarter: 2015Q2

REPORT INFORMATION
  Report Type: Spontaneous
  Country: IN (occurrence: IN)
  Receive Date: 20150430
  Receipt Date: 20150430
  Transmission Date: 20150821
  Serious: Yes (Death, Other)
  Sender: FDA-Public Use
  Company Number: IN-CIPLA LTD.-2015IN03411

PATIENT

DRUGS (2)
  1. IRINOTECAN [Suspect]
     Active Substance: IRINOTECAN
     Dosage: 65 MG/M2 EACH ON DAYS 1 AND 8 OF A 3 WEEKLY CYCLE
     Route: 065
  2. CISPLATIN. [Suspect]
     Active Substance: CISPLATIN
     Dosage: 30 MG/M2 EACH ON DAYS 1 AND 8 OF A 3 WEEKLY CYCLE
     Route: 065

REACTIONS (7)
  - Chest pain [Unknown]
  - Pleural effusion [Recovered/Resolved]
  - Pyrexia [Unknown]
  - Lung neoplasm malignant [Fatal]
  - Metastases to central nervous system [Unknown]
  - Abnormal behaviour [Unknown]
  - Tuberculous pleurisy [Unknown]
